FAERS Safety Report 13778007 (Version 2)
Quarter: 2017Q3

REPORT INFORMATION
  Report Type: Spontaneous
  Country: CH (occurrence: CH)
  Receive Date: 20170721
  Receipt Date: 20170728
  Transmission Date: 20171127
  Serious: No
  Sender: FDA-Public Use
  Company Number: PHHY2017CH103271

PATIENT
  Sex: Female

DRUGS (1)
  1. CANDESARTAN SANDOZ [Suspect]
     Active Substance: CANDESARTAN
     Indication: HYPERTENSION
     Dosage: 4 MG, QD (8 MG (1/2 TABLET PER DAY))
     Route: 065
     Dates: start: 20170228, end: 201707

REACTIONS (5)
  - Panic disorder [Unknown]
  - Blood glucose fluctuation [Recovered/Resolved]
  - Anxiety [Unknown]
  - Fluid retention [Unknown]
  - Rash [Unknown]

NARRATIVE: CASE EVENT DATE: 201706
